FAERS Safety Report 6903437-1 (Version None)
Quarter: 2010Q3

REPORT INFORMATION
  Report Type: 
  Country: None (occurrence: None)
  Receive Date: 20100803
  Receipt Date: 20081001
  Transmission Date: 20110219
  Serious: No
  Sender: FDA-Public Use
  Company Number: US-PFIZER INC-2008082929

PATIENT
  Age: 57 Year
  Sex: Female
  Weight: 68.181 kg

DRUGS (7)
  1. LYRICA [Suspect]
     Indication: FIBROMYALGIA
     Route: 048
     Dates: start: 20080819
  2. DRUG, UNSPECIFIED [Concomitant]
  3. PREVACID [Concomitant]
  4. ALLEGRA [Concomitant]
  5. ESTRATEST [Concomitant]
  6. LEVAQUIN [Concomitant]
  7. TRIAMTERENE [Concomitant]

REACTIONS (3)
  - GAIT DISTURBANCE [None]
  - MYALGIA [None]
  - WEIGHT INCREASED [None]
